FAERS Safety Report 24549591 (Version 1)
Quarter: 2024Q4

REPORT INFORMATION
  Report Type: Spontaneous
  Country: US (occurrence: US)
  Receive Date: 20241025
  Receipt Date: 20241025
  Transmission Date: 20250115
  Serious: Yes (Other)
  Sender: VIFOR (INTERNATIONAL) INC.
  Company Number: US-Vifor (International) Inc.-VIT-2024-09761

PATIENT
  Age: 34 Year
  Sex: Male
  Weight: 65.5 kg

DRUGS (1)
  1. MIRCERA [Suspect]
     Active Substance: METHOXY POLYETHYLENE GLYCOL-EPOETIN BETA
     Indication: Nephrogenic anaemia
     Dosage: FIRST DOSE
     Route: 040
     Dates: start: 20241005, end: 20241005

REACTIONS (4)
  - Drug hypersensitivity [Recovered/Resolved]
  - Malaise [Recovered/Resolved]
  - Flushing [Recovered/Resolved]
  - Dyspnoea [Recovered/Resolved]

NARRATIVE: CASE EVENT DATE: 20241005
